FAERS Safety Report 8017373-3 (Version None)
Quarter: 2012Q1

REPORT INFORMATION
  Report Type: 
  Country: None (occurrence: None)
  Receive Date: 20120102
  Receipt Date: 20111223
  Transmission Date: 20120608
  Serious: Yes (Other)
  Sender: FDA-Public Use
  Company Number: US-ROCHE-802168

PATIENT
  Sex: Female
  Weight: 74.91 kg

DRUGS (3)
  1. ACCUTANE [Suspect]
     Route: 048
     Dates: start: 20001001, end: 20010401
  2. ORTHO TRI-CYCLEN [Concomitant]
  3. ACCUTANE [Suspect]
     Indication: ACNE
     Dosage: FOR 04 MONTHS
     Route: 048
     Dates: start: 19970101, end: 19980101

REACTIONS (8)
  - IRRITABLE BOWEL SYNDROME [None]
  - CROHN'S DISEASE [None]
  - ILEAL STENOSIS [None]
  - DRY SKIN [None]
  - HEADACHE [None]
  - BLOOD TRIGLYCERIDES INCREASED [None]
  - BRONCHITIS [None]
  - LIP DRY [None]
